FAERS Safety Report 4781611-0 (Version None)
Quarter: 2005Q3

REPORT INFORMATION
  Report Type: 
  Country: None (occurrence: None)
  Receive Date: 20050928
  Receipt Date: 20040724
  Transmission Date: 20060218
  Serious: Yes (Death, Hospitalization)
  Sender: FDA-Public Use
  Company Number: US-SANOFI-SYNTHELABO-A03200402456

PATIENT
  Age: 38 Year
  Sex: Female

DRUGS (5)
  1. PLAVIX [Suspect]
     Indication: MYOCARDIAL INFARCTION
     Route: 048
     Dates: start: 20030428, end: 20030507
  2. PLAVIX [Suspect]
     Indication: CORONARY ANGIOPLASTY
     Route: 048
     Dates: start: 20030428, end: 20030507
  3. PLAVIX [Suspect]
     Indication: CORONARY ARTERY OCCLUSION
     Route: 048
     Dates: start: 20030428, end: 20030507
  4. TOPROL-XL [Concomitant]
     Dosage: UNK
     Route: 048
  5. ASPIRIN [Concomitant]
     Dosage: UNK
     Route: 048

REACTIONS (21)
  - BLOOD BILIRUBIN INCREASED [None]
  - BLOOD CREATININE INCREASED [None]
  - BLOOD LACTATE DEHYDROGENASE INCREASED [None]
  - BRAIN OEDEMA [None]
  - CARDIOMEGALY [None]
  - CHEST PAIN [None]
  - DIARRHOEA [None]
  - HEPATIC CONGESTION [None]
  - HYPERTENSIVE HEART DISEASE [None]
  - IRON DEFICIENCY ANAEMIA [None]
  - MALAISE [None]
  - NAUSEA [None]
  - NEUROLOGICAL SYMPTOM [None]
  - OEDEMA [None]
  - PULMONARY CONGESTION [None]
  - RED BLOOD CELL SCHISTOCYTES PRESENT [None]
  - RENAL DISORDER [None]
  - RENAL TUBULAR NECROSIS [None]
  - RESPIRATORY DISTRESS [None]
  - THROMBOTIC THROMBOCYTOPENIC PURPURA [None]
  - VOMITING [None]
